FAERS Safety Report 19101937 (Version 1)
Quarter: 2021Q2

REPORT INFORMATION
  Report Type: Spontaneous
  Country: GB (occurrence: GB)
  Receive Date: 20210407
  Receipt Date: 20210407
  Transmission Date: 20210717
  Serious: Yes (Other)
  Sender: FDA-Public Use
  Company Number: GB-TEVA-2021-GB-1896509

PATIENT
  Age: 32 Year

DRUGS (1)
  1. PALIPERIDONE. [Suspect]
     Active Substance: PALIPERIDONE
     Dosage: 150MG, STRENGTH: 150MG/1.5ML
     Route: 030
     Dates: start: 20210209

REACTIONS (1)
  - Retching [Unknown]
